FAERS Safety Report 4510023-X (Version None)
Quarter: 2004Q4

REPORT INFORMATION
  Report Type: 
  Country: None (occurrence: None)
  Receive Date: 20041119
  Receipt Date: 20041111
  Transmission Date: 20050328
  Serious: Yes (Death, Hospitalization)
  Sender: FDA-Public Use
  Company Number: STA-AE-04-MTX-563

PATIENT
  Age: 65 Year
  Sex: Male

DRUGS (4)
  1. RHEUMATREX [Suspect]
     Indication: RHEUMATOID ARTHRITIS
     Dosage: 6 MG
  2. REMICADE [Concomitant]
  3. REMICADE [Concomitant]
  4. REMICADE [Concomitant]

REACTIONS (9)
  - ABDOMINAL PAIN UPPER [None]
  - ACIDOSIS [None]
  - ASCITES [None]
  - BLOOD PRESSURE DECREASED [None]
  - DISSEMINATED INTRAVASCULAR COAGULATION [None]
  - GASTRIC CANCER [None]
  - MALIGNANT NEOPLASM PROGRESSION [None]
  - MELAENA [None]
  - METASTASES TO LIVER [None]
